FAERS Safety Report 16535396 (Version 1)
Quarter: 2019Q3

REPORT INFORMATION
  Report Type: Spontaneous
  Country: IT (occurrence: IT)
  Receive Date: 20190705
  Receipt Date: 20190705
  Transmission Date: 20191004
  Serious: Yes (Other)
  Sender: FDA-Public Use
  Company Number: IT-TEVA-2019-IT-1073238

PATIENT
  Age: 78 Year

DRUGS (1)
  1. LETROZOLO TEVA [Suspect]
     Active Substance: LETROZOLE
     Indication: BREAST CANCER
     Dosage: 1 DOSAGE FORMS DAILY;
     Route: 048

REACTIONS (2)
  - Colitis ulcerative [Unknown]
  - Product substitution issue [Unknown]

NARRATIVE: CASE EVENT DATE: 20190515
